FAERS Safety Report 6043317-X (Version None)
Quarter: 2009Q1

REPORT INFORMATION
  Report Type: 
  Country: None (occurrence: None)
  Receive Date: 20090115
  Receipt Date: 20081022
  Transmission Date: 20090719
  Serious: Yes (Other)
  Sender: FDA-Public Use
  Company Number: CHPA2008US18470

PATIENT
  Age: 45 Year
  Sex: Female
  Weight: 59 kg

DRUGS (1)
  1. VOLTAREN [Suspect]
     Dosage: TOPICAL
     Route: 061

REACTIONS (2)
  - BURNS SECOND DEGREE [None]
  - WRONG TECHNIQUE IN DRUG USAGE PROCESS [None]
